FAERS Safety Report 6295154-9 (Version None)
Quarter: 2009Q3

REPORT INFORMATION
  Report Type: 
  Country: None (occurrence: None)
  Receive Date: 20090803
  Receipt Date: 20090803
  Transmission Date: 20100115
  Serious: Yes (Other)
  Sender: FDA-Public Use
  Company Number: US-PFIZER INC-2009219747

PATIENT
  Sex: Female
  Weight: 49.895 kg

DRUGS (6)
  1. CELEBREX [Suspect]
     Indication: MUSCULOSKELETAL PAIN
     Dosage: 200 MG, 2X/DAY
     Dates: start: 20090101, end: 20090501
  2. CECLOR [Concomitant]
  3. MULTI-VITAMINS [Concomitant]
     Dosage: UNK
  4. VITAMIN B COMPLEX CAP [Concomitant]
     Dosage: UNK
  5. FOLIC ACID [Concomitant]
     Dosage: UNK
  6. CALCIUM [Concomitant]
     Dosage: UNK

REACTIONS (3)
  - APHTHOUS STOMATITIS [None]
  - LYMPHADENOPATHY [None]
  - RASH [None]
